FAERS Safety Report 11305759 (Version 1)
Quarter: 2015Q3

REPORT INFORMATION
  Report Type: Spontaneous
  Country: US (occurrence: US)
  Receive Date: 20150723
  Receipt Date: 20150723
  Transmission Date: 20151125
  Serious: No
  Sender: FDA-Public Use
  Company Number: US-JNJFOC-20150502569

PATIENT
  Age: 17 Year
  Sex: Male
  Weight: 54.43 kg

DRUGS (3)
  1. ^VITAMINS^ (NOS) [Concomitant]
     Indication: NUTRITIONAL SUPPLEMENTATION
     Route: 065
  2. ZYRTEC [Suspect]
     Active Substance: CETIRIZINE HYDROCHLORIDE
     Indication: MULTIPLE ALLERGIES
     Route: 048
  3. ZYRTEC [Suspect]
     Active Substance: CETIRIZINE HYDROCHLORIDE
     Route: 048

REACTIONS (2)
  - Product contamination [Unknown]
  - Rash [Not Recovered/Not Resolved]

NARRATIVE: CASE EVENT DATE: 20150429
